FAERS Safety Report 8580180-7 (Version None)
Quarter: 2012Q3

REPORT INFORMATION
  Report Type: 
  Country: None (occurrence: None)
  Receive Date: 20120808
  Receipt Date: 20120705
  Transmission Date: 20120928
  Serious: No
  Sender: FDA-Public Use
  Company Number: US-ASTRAZENECA-2012SE29740

PATIENT
  Age: 54 Year
  Sex: Male

DRUGS (2)
  1. SYMBICORT [Suspect]
     Dosage: 2 PUFFS AT 2.30 TO 3 AM AND 1 PUFF AROUND 7-8 PM
     Route: 055
     Dates: start: 20120402
  2. FLUTICASONE PROPIONATE [Concomitant]

REACTIONS (5)
  - DRY MOUTH [None]
  - OFF LABEL USE [None]
  - INTENTIONAL DRUG MISUSE [None]
  - DRUG DOSE OMISSION [None]
  - WHEEZING [None]
